FAERS Safety Report 7565855-0 (Version None)
Quarter: 2011Q2

REPORT INFORMATION
  Report Type: 
  Country: None (occurrence: None)
  Receive Date: 20110623
  Receipt Date: 20110620
  Transmission Date: 20111010
  Serious: No
  Sender: FDA-Public Use
  Company Number: US-PFIZER INC-2011136109

PATIENT
  Age: 20 Year
  Sex: Female

DRUGS (3)
  1. VITAMIN B-12 [Concomitant]
     Dosage: UNK
  2. LYRICA [Suspect]
     Dosage: 50 MG, 2X/DAY
     Dates: start: 20110601
  3. LYRICA [Suspect]
     Indication: FIBROMYALGIA
     Dosage: 50 MG, 1X/DAY
     Route: 048
     Dates: start: 20110601, end: 20110601

REACTIONS (2)
  - RASH [None]
  - PAIN [None]
